FAERS Safety Report 9927089 (Version 2)
Quarter: 2014Q1

REPORT INFORMATION
  Report Type: Spontaneous
  Country: US (occurrence: US)
  Receive Date: 20140226
  Receipt Date: 20140226
  Transmission Date: 20141002
  Serious: No
  Sender: FDA-Public Use
  Company Number: US-AMGEN-USASP2013076621

PATIENT
  Age: 58 Year
  Sex: Female
  Weight: 77.1 kg

DRUGS (17)
  1. ENBREL [Suspect]
     Indication: PSORIATIC ARTHROPATHY
     Dosage: 50 MG, QWK
     Route: 058
     Dates: start: 20131009
  2. CELEBREX [Concomitant]
     Dosage: 200 MG, UNK
     Route: 048
  3. FLECAINIDE [Concomitant]
     Dosage: 100 MG, UNK
     Route: 048
  4. PREDNISONE [Concomitant]
     Dosage: 10 MG, UNK
     Route: 048
  5. METHOTREXATE [Concomitant]
     Dosage: 2.5 MG, UNK
     Route: 048
  6. METFORMIN [Concomitant]
     Dosage: 500 MG, UNK
     Route: 048
  7. LISINOPRIL [Concomitant]
     Dosage: 10 MG, UNK
     Route: 048
  8. OMEPRAZOLE [Concomitant]
     Dosage: 10 MG, UNK
     Route: 048
  9. METOPROLOL [Concomitant]
     Dosage: 25 MG, ER PO UNK
     Route: 048
  10. DILTIAZEM [Concomitant]
     Dosage: 120 MG, CD PO UNK
     Route: 048
  11. ALLOPURINOL [Concomitant]
     Dosage: 300 MG, UNK
     Route: 048
  12. CRESTOR [Concomitant]
     Dosage: 10 MG, UNK
     Route: 048
  13. ZANTAC [Concomitant]
     Dosage: 75 MG, UNK
     Route: 048
  14. ZANAFLEX [Concomitant]
     Dosage: 2 MG, UNK
     Route: 048
  15. PERCOCET                           /00867901/ [Concomitant]
     Dosage: 10-325 MG PO, UNK
     Route: 048
  16. ASPIRIN [Concomitant]
     Dosage: 81 MG, UNK
     Route: 048
  17. FOLIC ACID [Concomitant]
     Dosage: UNK
     Route: 048

REACTIONS (5)
  - Supraventricular tachycardia [Unknown]
  - Chills [Unknown]
  - Pyrexia [Unknown]
  - Infection [Unknown]
  - Sinusitis [Recovered/Resolved]
